FAERS Safety Report 7640379-0 (Version None)
Quarter: 2011Q3

REPORT INFORMATION
  Report Type: 
  Country: None (occurrence: None)
  Receive Date: 20110728
  Receipt Date: 20110718
  Transmission Date: 20111222
  Serious: Yes (Hospitalization)
  Sender: FDA-Public Use
  Company Number: US-BIOGENIDEC-2007BI021617

PATIENT
  Age: 56 Year
  Sex: Female

DRUGS (3)
  1. AVONEX [Suspect]
     Indication: MULTIPLE SCLEROSIS
     Route: 030
     Dates: start: 19970101, end: 19990101
  2. AVONEX [Suspect]
     Route: 030
     Dates: start: 20080609
  3. AVONEX [Suspect]
     Route: 030
     Dates: start: 20070326, end: 20080301

REACTIONS (8)
  - ATRIAL FLUTTER [None]
  - ANEURYSM [None]
  - POST PROCEDURAL COMPLICATION [None]
  - CEREBRAL ARTERITIS [None]
  - MYOCARDIAL INFARCTION [None]
  - ATRIAL FIBRILLATION [None]
  - ARTERIAL THROMBOSIS [None]
  - TRANSIENT ISCHAEMIC ATTACK [None]
